FAERS Safety Report 15841473 (Version 3)
Quarter: 2019Q1

REPORT INFORMATION
  Report Type: Report from Study
  Country: US (occurrence: US)
  Receive Date: 20190118
  Receipt Date: 20190213
  Transmission Date: 20190417
  Serious: No
  Sender: FDA-Public Use
  Company Number: US-IPSEN BIOPHARMACEUTICALS, INC.-2019-00560

PATIENT
  Sex: Male
  Weight: 74.46 kg

DRUGS (5)
  1. SANDOSTATIN LAR DEPOT [Concomitant]
     Active Substance: OCTREOTIDE ACETATE
  2. SOMATULINE DEPOT [Suspect]
     Active Substance: LANREOTIDE ACETATE
     Indication: ACROMEGALY
     Dosage: STRENGTH: 90 MG/0.3 ML;  UPPER BUTTOCK ROTATING BETWEEN SIDES
     Dates: start: 20111104
  3. SOMATULINE DEPOT [Suspect]
     Active Substance: LANREOTIDE ACETATE
     Dosage: STRENGTH: 90 MG/0.3 ML;  UPPER BUTTOCK ROTATING BETWEEN SIDES
     Dates: start: 20160816, end: 20170320
  4. SOMAVERT [Concomitant]
     Active Substance: PEGVISOMANT
  5. SOMATULINE DEPOT [Suspect]
     Active Substance: LANREOTIDE ACETATE
     Dosage: STRENGTH: 90 MG/0.3 ML;  UPPER BUTTOCK ROTATING BETWEEN SIDES
     Dates: start: 20181228

REACTIONS (3)
  - Fluid retention [Not Recovered/Not Resolved]
  - Headache [Not Recovered/Not Resolved]
  - Sleep apnoea syndrome [Not Recovered/Not Resolved]
